FAERS Safety Report 6183270-1 (Version None)
Quarter: 2009Q2

REPORT INFORMATION
  Report Type: 
  Country: None (occurrence: None)
  Receive Date: 20090506
  Receipt Date: 20090421
  Transmission Date: 20091009
  Serious: Yes (Life-Threatening, Hospitalization)
  Sender: FDA-Public Use
  Company Number: 2009050017

PATIENT
  Age: 67 Year
  Sex: Male

DRUGS (2)
  1. TORSEMIDE [Suspect]
     Indication: HYPERTENSION
     Dosage: 2.5 MG (2.5 MG, 1 IN 1 D), ORAL
     Route: 048
     Dates: start: 20060101, end: 20081128
  2. VALSARTAN [Suspect]
     Indication: HYPERTENSION
     Dosage: 160 MG (160 MG, 1 IN 1 D)
     Dates: start: 20060101, end: 20081128

REACTIONS (6)
  - CYTOMEGALOVIRUS ANTIBODY POSITIVE [None]
  - DISORIENTATION [None]
  - EPSTEIN-BARR VIRUS ANTIBODY POSITIVE [None]
  - HEPATIC CIRRHOSIS [None]
  - PORTAL HYPERTENSION [None]
  - TOXOPLASMA SEROLOGY POSITIVE [None]
